FAERS Safety Report 18900036 (Version 2)
Quarter: 2021Q1

REPORT INFORMATION
  Report Type: Report from Study
  Country: HU (occurrence: HU)
  Receive Date: 20210216
  Receipt Date: 20210301
  Transmission Date: 20210420
  Serious: Yes (Other)
  Sender: FDA-Public Use
  Company Number: NVSC2020HU148057

PATIENT
  Age: 43 Year

DRUGS (1)
  1. KISQALI [Suspect]
     Active Substance: RIBOCICLIB
     Indication: BREAST CANCER METASTATIC
     Dosage: UNK
     Route: 065
     Dates: start: 2020

REACTIONS (12)
  - Metastasis [Unknown]
  - Back pain [Unknown]
  - Chest pain [Unknown]
  - Neutropenia [Recovering/Resolving]
  - Alopecia [Unknown]
  - Malignant neoplasm progression [Unknown]
  - White blood cell count decreased [Unknown]
  - Vomiting [Unknown]
  - Extra dose administered [Unknown]
  - Metastases to bone [Unknown]
  - Metastases to liver [Unknown]
  - Bone pain [Unknown]

NARRATIVE: CASE EVENT DATE: 2020
